FAERS Safety Report 20374802 (Version 2)
Quarter: 2022Q1

REPORT INFORMATION
  Report Type: Spontaneous
  Country: JP (occurrence: JP)
  Receive Date: 20220125
  Receipt Date: 20220210
  Transmission Date: 20220423
  Serious: Yes (Other)
  Sender: FDA-Public Use
  Company Number: JP-GLAXOSMITHKLINE-JP2022JPN011294

PATIENT

DRUGS (5)
  1. NUCALA [Suspect]
     Active Substance: MEPOLIZUMAB
     Indication: Eosinophilic granulomatosis with polyangiitis
     Dosage: UNK
  2. PREDNISOLONE [Suspect]
     Active Substance: PREDNISOLONE
     Indication: Eosinophilic granulomatosis with polyangiitis
     Dosage: UNK
  3. PREDNISOLONE [Suspect]
     Active Substance: PREDNISOLONE
     Indication: Condition aggravated
     Dosage: UNK
  4. PREDNISOLONE [Suspect]
     Active Substance: PREDNISOLONE
     Indication: Rash
  5. PREDNISOLONE [Suspect]
     Active Substance: PREDNISOLONE
     Indication: Nervous system disorder

REACTIONS (4)
  - Eosinophilic granulomatosis with polyangiitis [Recovered/Resolved]
  - Condition aggravated [Recovered/Resolved]
  - Rash [Recovered/Resolved]
  - Nervous system disorder [Recovered/Resolved]
